FAERS Safety Report 13523782 (Version 2)
Quarter: 2017Q3

REPORT INFORMATION
  Report Type: Spontaneous
  Country: US (occurrence: US)
  Receive Date: 20170508
  Receipt Date: 20170810
  Transmission Date: 20171127
  Serious: No
  Sender: FDA-Public Use
  Company Number: US-VIFOR (INTERNATIONAL) INC.-VIT-2017-03530

PATIENT
  Age: 76 Year
  Sex: Male

DRUGS (14)
  1. COMBIGAN [Concomitant]
     Active Substance: BRIMONIDINE TARTRATE\TIMOLOL MALEATE
  2. FOLITAB [Concomitant]
  3. VELTASSA [Suspect]
     Active Substance: PATIROMER
     Indication: HYPERKALAEMIA
     Route: 048
     Dates: start: 20170221
  4. TRADJENTA [Concomitant]
     Active Substance: LINAGLIPTIN
  5. GLIPIZIDE. [Concomitant]
     Active Substance: GLIPIZIDE
  6. LOVASTATIN. [Concomitant]
     Active Substance: LOVASTATIN
  7. ATENOLOL. [Concomitant]
     Active Substance: ATENOLOL
  8. LATANOPROST. [Concomitant]
     Active Substance: LATANOPROST
  9. LOSARTAN POTASSIUM. [Concomitant]
     Active Substance: LOSARTAN POTASSIUM
  10. LOSARTAN POTASSIUM. [Concomitant]
     Active Substance: LOSARTAN POTASSIUM
  11. TAMSULOSIN HYDROCHLORIDE. [Concomitant]
     Active Substance: TAMSULOSIN HYDROCHLORIDE
  12. PRAVASTATIN. [Concomitant]
     Active Substance: PRAVASTATIN
  13. TIMOLOL. [Concomitant]
     Active Substance: TIMOLOL
     Route: 048
  14. VELTASSA [Suspect]
     Active Substance: PATIROMER
     Dates: start: 20170124

REACTIONS (2)
  - Inappropriate schedule of drug administration [Unknown]
  - Constipation [Not Recovered/Not Resolved]

NARRATIVE: CASE EVENT DATE: 20170221
